FAERS Safety Report 4629397-4 (Version None)
Quarter: 2005Q2

REPORT INFORMATION
  Report Type: 
  Country: None (occurrence: None)
  Receive Date: 20050405
  Receipt Date: 20050321
  Transmission Date: 20051028
  Serious: No
  Sender: FDA-Public Use
  Company Number: 2005SE01800

PATIENT
  Age: 45 Year
  Sex: Female

DRUGS (4)
  1. MARCAINE [Suspect]
     Indication: EPIDURAL ANAESTHESIA
     Dates: start: 20030916, end: 20030916
  2. FENTANYL CITRATE [Concomitant]
  3. PREMARINA [Concomitant]
  4. ANALGESIA [Concomitant]

REACTIONS (11)
  - ANAESTHETIC COMPLICATION [None]
  - ARACHNOIDITIS [None]
  - ASTHENIA [None]
  - BACK PAIN [None]
  - DRUG TOXICITY [None]
  - GAIT DISTURBANCE [None]
  - HYPOAESTHESIA [None]
  - MEDICAL DEVICE COMPLICATION [None]
  - NEURALGIA [None]
  - PAIN IN EXTREMITY [None]
  - SENSORY LOSS [None]
